FAERS Safety Report 11278893 (Version 1)
Quarter: 2015Q3

REPORT INFORMATION
  Report Type: Spontaneous
  Country: US (occurrence: US)
  Receive Date: 20150717
  Receipt Date: 20150717
  Transmission Date: 20151125
  Serious: No
  Sender: FDA-Public Use
  Company Number: US-ENDO PHARMACEUTICALS INC.-LISI20140049

PATIENT
  Age: 73 Year
  Sex: Female

DRUGS (2)
  1. ATENOLOL TABLETS [Concomitant]
     Active Substance: ATENOLOL
     Indication: BLOOD PRESSURE MEASUREMENT
     Dosage: UNK
     Route: 065
  2. LISINOPRIL TABLETS 10MG [Suspect]
     Active Substance: LISINOPRIL
     Indication: BLOOD PRESSURE MEASUREMENT
     Route: 048
     Dates: start: 20140903, end: 20140903

REACTIONS (3)
  - Feeling abnormal [Unknown]
  - Eye pain [Unknown]
  - Myalgia [Unknown]

NARRATIVE: CASE EVENT DATE: 20140903
